FAERS Safety Report 5153223-0 (Version None)
Quarter: 2006Q4

REPORT INFORMATION
  Report Type: 
  Country: None (occurrence: None)
  Receive Date: 20061117
  Receipt Date: 20060928
  Transmission Date: 20070319
  Serious: Yes (Disabling)
  Sender: FDA-Public Use
  Company Number: 2006SE05291

PATIENT
  Age: 18078 Day
  Sex: Female

DRUGS (1)
  1. NEXIUM [Suspect]
     Route: 048
     Dates: start: 20060921, end: 20060929

REACTIONS (2)
  - CROHN'S DISEASE [None]
  - ERYTHEMA NODOSUM [None]
